FAERS Safety Report 5933347-8 (Version None)
Quarter: 2008Q4

REPORT INFORMATION
  Report Type: 
  Country: None (occurrence: None)
  Receive Date: 20081023
  Receipt Date: 20081010
  Transmission Date: 20090506
  Serious: Yes (Hospitalization)
  Sender: FDA-Public Use
  Company Number: TRP_05930_2008

PATIENT
  Sex: Female

DRUGS (2)
  1. RIBAVIRIN [Suspect]
     Indication: HEPATITIS C VIRUS TEST
     Dosage: 600 MG BID ORAL
     Route: 048
     Dates: start: 20080702, end: 20080728
  2. PEGASYS [Suspect]
     Indication: HEPATITIS C VIRUS TEST
     Dosage: 180 ?G  1X/WEEK SUBCUTANEOUS
     Route: 058
     Dates: start: 20080702, end: 20080728

REACTIONS (8)
  - ABASIA [None]
  - DYSPNOEA [None]
  - FATIGUE [None]
  - HEPATIC CIRRHOSIS [None]
  - INFECTION [None]
  - OEDEMA PERIPHERAL [None]
  - PANCYTOPENIA [None]
  - SWELLING [None]
